FAERS Safety Report 25521361 (Version 1)
Quarter: 2025Q3

REPORT INFORMATION
  Report Type: Other
  Country: US (occurrence: US)
  Receive Date: 20250705
  Receipt Date: 20250705
  Transmission Date: 20251020
  Serious: No
  Sender: TRAVERE THERAPEUTICS
  Company Number: US-TRAVERE-2025TVT00923

PATIENT
  Sex: Female

DRUGS (1)
  1. FILSPARI [Suspect]
     Active Substance: SPARSENTAN
     Indication: Product used for unknown indication
     Route: 048

REACTIONS (5)
  - Pain in extremity [Recovered/Resolved]
  - Gait inability [Recovered/Resolved]
  - Dysstasia [Recovered/Resolved]
  - Haematochezia [Recovered/Resolved]
  - Wrong technique in product usage process [Unknown]
